FAERS Safety Report 18615046 (Version 2)
Quarter: 2020Q4

REPORT INFORMATION
  Report Type: Spontaneous
  Country: DE (occurrence: DE)
  Receive Date: 20201215
  Receipt Date: 20201221
  Transmission Date: 20210114
  Serious: Yes (Other)
  Sender: FDA-Public Use
  Company Number: DE-AUROBINDO-AUR-APL-2020-060625

PATIENT
  Age: 31 Year
  Sex: Male

DRUGS (3)
  1. ARIPIPRAZOLE TABLETS [Suspect]
     Active Substance: ARIPIPRAZOLE
     Indication: SCHIZOPHRENIA
     Dosage: 10 MILLIGRAM, ONCE A DAY
     Route: 048
  2. RISPERIDONE. [Concomitant]
     Active Substance: RISPERIDONE
     Dosage: 4 MILLIGRAM, ONCE A DAY  (2X2 MG)
     Route: 048
  3. RISPERIDONE. [Concomitant]
     Active Substance: RISPERIDONE
     Indication: PRODUCT USED FOR UNKNOWN INDICATION
     Dosage: 0.5 MILLIGRAM, ONCE A DAY  (1X0.5 MG)
     Route: 048

REACTIONS (5)
  - Akathisia [Recovered/Resolved]
  - Product use in unapproved indication [Unknown]
  - Depressed level of consciousness [Recovered/Resolved]
  - Restlessness [Recovered/Resolved]
  - Disturbance in attention [Recovered/Resolved]
